FAERS Safety Report 5124643-5 (Version None)
Quarter: 2006Q4

REPORT INFORMATION
  Report Type: 
  Country: None (occurrence: None)
  Receive Date: 20061006
  Receipt Date: 20061006
  Transmission Date: 20070319
  Serious: Yes (Other)
  Sender: FDA-Public Use
  Company Number: None

PATIENT
  Age: 80 Year
  Sex: Male
  Weight: 70.3075 kg

DRUGS (1)
  1. SERTRALINE [Suspect]
     Indication: ANXIETY
     Dosage: 100 MG ONCE A DAY PO
     Route: 048
     Dates: start: 20060722, end: 20061006

REACTIONS (4)
  - ABDOMINAL DISTENSION [None]
  - DYSKINESIA [None]
  - ENURESIS [None]
  - NOCTURIA [None]
